FAERS Safety Report 4660235-X (Version None)
Quarter: 2005Q2

REPORT INFORMATION
  Report Type: 
  Country: None (occurrence: None)
  Receive Date: 20050427
  Receipt Date: 20050114
  Transmission Date: 20051028
  Serious: No
  Sender: FDA-Public Use
  Company Number: 211740

PATIENT
  Age: 42 Year
  Sex: Female
  Weight: 79.8 kg

DRUGS (13)
  1. XOLAIR [Suspect]
     Dosage: 375 MG, Q2W, SUBCUTANEOUS
     Route: 058
     Dates: start: 20040903, end: 20050111
  2. SINGULAIR [Concomitant]
  3. NEXIUM [Concomitant]
  4. UNIPHYL [Concomitant]
  5. HCL (HYDROCHLORIC ACID) [Concomitant]
  6. HYDROCHLOROTHIAZIDE [Concomitant]
  7. ZOLOFT [Concomitant]
  8. ADVAIR (FLUTICASONE PROPIONATE, SALMETEROL XINAFOATE) [Concomitant]
  9. SPIRIVA [Concomitant]
  10. DARVOCET [Concomitant]
  11. COMBIVENT (IPRATROPIUM BROMIDE, ALBUTEROL SULFATE, ALBUTEROL) [Concomitant]
  12. ALBUTEROL (ALBUTEROL, ALBUTEROL SULFATE) [Concomitant]
  13. KCL (POTASSIUM CHLORIDE) [Concomitant]

REACTIONS (1)
  - MENSTRUAL DISORDER [None]
